FAERS Safety Report 20700030 (Version 4)
Quarter: 2022Q2

REPORT INFORMATION
  Report Type: Report from Study
  Country: DE (occurrence: None)
  Receive Date: 20220412
  Receipt Date: 20220506
  Transmission Date: 20220721
  Serious: Yes (Hospitalization)
  Sender: FDA-Public Use
  Company Number: DE-ROCHE-2921116

PATIENT
  Age: 67 Year
  Sex: Male
  Weight: 74.6 kg

DRUGS (13)
  1. OBINUTUZUMAB [Suspect]
     Active Substance: OBINUTUZUMAB
     Indication: Chronic lymphocytic leukaemia
     Dosage: MOST RECENT DOSE OF OBUNUTIZUMAB ON 01/DEC/2021, 26/JAN/2022?ON DAYS 1 (AND 2), 8 AND 15 AS WELL AS
     Route: 042
     Dates: start: 20211103
  2. VENETOCLAX [Suspect]
     Active Substance: VENETOCLAX
     Indication: Chronic lymphocytic leukaemia
     Dosage: ON 22/FEB/2022, HE RECEIVED THE MOST RECENT DOSE OF VENETOCLAX PRIOR TO EVENT.
     Route: 048
     Dates: start: 20211229
  3. BENDAMUSTINE [Suspect]
     Active Substance: BENDAMUSTINE
     Indication: Chronic lymphocytic leukaemia
     Route: 042
     Dates: start: 20210908
  4. BENDAMUSTINE [Suspect]
     Active Substance: BENDAMUSTINE
     Dosage: LAST DOSE RECEIVED ON 07/OCT/2021 (148 MG).
     Route: 042
     Dates: start: 20210909, end: 20211007
  5. ZANUBRUTINIB [Suspect]
     Active Substance: ZANUBRUTINIB
     Indication: Chronic lymphocytic leukaemia
     Dosage: ON 28/DEC/2021, 22/FEB/2022, RECEIVED MOST RECENT DOSE OF ZANUBRUTINIB PRIOR TO EVENT
     Route: 048
     Dates: start: 20211201
  6. ALLOPURINOL [Concomitant]
     Active Substance: ALLOPURINOL
     Route: 048
  7. PANTOZOL [Concomitant]
     Active Substance: PANTOPRAZOLE SODIUM
     Route: 048
  8. GABAPENTIN [Concomitant]
     Active Substance: GABAPENTIN
     Route: 048
  9. VALGANCICLOVIR [Concomitant]
     Active Substance: VALGANCICLOVIR
     Route: 048
  10. SULFAMETHOXAZOLE\TRIMETHOPRIM [Concomitant]
     Active Substance: SULFAMETHOXAZOLE\TRIMETHOPRIM
     Route: 048
  11. SOTROVIMAB [Concomitant]
     Active Substance: SOTROVIMAB
     Route: 042
     Dates: start: 20220215, end: 20220215
  12. VALTREX [Concomitant]
     Active Substance: VALACYCLOVIR HYDROCHLORIDE
     Route: 048
  13. SULFAMETHOXAZOLE\TRIMETHOPRIM [Concomitant]
     Active Substance: SULFAMETHOXAZOLE\TRIMETHOPRIM
     Route: 048

REACTIONS (4)
  - Pneumonia pseudomonal [Not Recovered/Not Resolved]
  - Pneumonia [Unknown]
  - COVID-19 pneumonia [Not Recovered/Not Resolved]
  - Pneumonia [Recovered/Resolved]

NARRATIVE: CASE EVENT DATE: 20210922
